FAERS Safety Report 7149283-8 (Version None)
Quarter: 2010Q4

REPORT INFORMATION
  Report Type: 
  Country: None (occurrence: None)
  Receive Date: 20101209
  Receipt Date: 20101202
  Transmission Date: 20110411
  Serious: Yes (Other)
  Sender: FDA-Public Use
  Company Number: US-JNJCH-2010027889

PATIENT
  Age: 41 Year
  Sex: Female
  Weight: 77.6 kg

DRUGS (1)
  1. ZYRTEC-D 12 HOUR [Suspect]
     Indication: PRODUCT USED FOR UNKNOWN INDICATION
     Dosage: TEXT:ONE AS DIRECTED ONCE A DAY
     Route: 048
     Dates: start: 20101130, end: 20101130

REACTIONS (3)
  - HEART RATE INCREASED [None]
  - HYPERSENSITIVITY [None]
  - HYPERTENSION [None]
